FAERS Safety Report 9309965 (Version 1)
Quarter: 2013Q2

REPORT INFORMATION
  Report Type: Spontaneous
  Country: US (occurrence: US)
  Receive Date: 20130527
  Receipt Date: 20130527
  Transmission Date: 20140414
  Serious: Yes (Other)
  Sender: FDA-Public Use
  Company Number: US-PFIZER INC-2011077393

PATIENT
  Age: 64 Year
  Sex: Female
  Weight: 68.03 kg

DRUGS (10)
  1. PRISTIQ [Suspect]
     Indication: MAJOR DEPRESSION
     Dosage: 50 MG, 2X/DAY
     Route: 048
     Dates: start: 20110105, end: 201104
  2. PRISTIQ [Suspect]
     Dosage: 100 MG, 2X/DAY
     Route: 048
     Dates: start: 201104
  3. LABETALOL [Concomitant]
     Indication: HYPERTENSION
     Dosage: UNK
  4. LEVOTHYROXINE [Concomitant]
     Indication: THYROID DISORDER
     Dosage: 100 UG, UNK
  5. HYDROCHLOROTHIAZIDE [Concomitant]
     Indication: HYPERTENSION
     Dosage: 25 MG DAILY
  6. LOVASTATIN [Concomitant]
     Indication: BLOOD CHOLESTEROL INCREASED
     Dosage: 40 MG DAILY
  7. TOPAMAX [Concomitant]
     Dosage: TWO 100 MG TABLETS DAILY
     Route: 048
  8. TRAZODONE [Concomitant]
     Indication: DEPRESSION
     Dosage: 50 MG DAILY
  9. KLOR-CON M10 [Concomitant]
     Indication: BLOOD POTASSIUM DECREASED
     Dosage: UNK, DAILY
  10. CLONAZEPAM [Concomitant]
     Indication: ANXIETY
     Dosage: 1 MG DAILY

REACTIONS (2)
  - Suicidal behaviour [Unknown]
  - Dysgeusia [Unknown]
